FAERS Safety Report 23292317 (Version 1)
Quarter: 2023Q4

REPORT INFORMATION
  Report Type: Spontaneous
  Country: US (occurrence: None)
  Receive Date: 20231212
  Receipt Date: 20231212
  Transmission Date: 20240110
  Serious: Yes (Hospitalization)
  Sender: FDA-Public Use
  Company Number: None

PATIENT
  Age: 57 Year
  Sex: Male
  Weight: 120 kg

DRUGS (12)
  1. AD26.COV2.S [Suspect]
     Active Substance: AD26.COV2.S
  2. ASPIRIN [Concomitant]
     Active Substance: ASPIRIN
  3. ATORVASTATIN [Concomitant]
     Active Substance: ATORVASTATIN
  4. BUMETANIDE [Concomitant]
     Active Substance: BUMETANIDE
  5. CHOLECALCIFEROL [Concomitant]
     Active Substance: CHOLECALCIFEROL
  6. CINACALCET [Concomitant]
     Active Substance: CINACALCET
  7. METOPROLOL TARTRATE [Concomitant]
     Active Substance: METOPROLOL TARTRATE
  8. VITAMINS [Concomitant]
     Active Substance: VITAMINS
  9. PANTOPRAZOLE [Concomitant]
     Active Substance: PANTOPRAZOLE
  10. TRAZODONE [Concomitant]
     Active Substance: TRAZODONE HYDROCHLORIDE
  11. WARFARIN [Concomitant]
     Active Substance: WARFARIN
  12. COUMADIN [Suspect]
     Active Substance: WARFARIN SODIUM

REACTIONS (6)
  - Retroperitoneal haematoma [None]
  - Blood loss anaemia [None]
  - International normalised ratio increased [None]
  - Joint injury [None]
  - Back pain [None]
  - Flank pain [None]

NARRATIVE: CASE EVENT DATE: 20231203
